FAERS Safety Report 10203012 (Version 1)
Quarter: 2014Q2

REPORT INFORMATION
  Report Type: Spontaneous
  Country: US (occurrence: US)
  Receive Date: 20140528
  Receipt Date: 20140528
  Transmission Date: 20141212
  Serious: Yes (Hospitalization)
  Sender: FDA-Public Use
  Company Number: US-PFIZER INC-2014141346

PATIENT
  Age: 74 Year
  Sex: Female

DRUGS (2)
  1. SUTENT [Suspect]
     Indication: METASTATIC RENAL CELL CARCINOMA
     Dosage: 25 MG, UNK,UNK
     Dates: start: 201402
  2. SUTENT [Suspect]
     Dosage: 12.5 MG, UNK
     Dates: start: 201405

REACTIONS (8)
  - Dehydration [Unknown]
  - Ageusia [Unknown]
  - Dysgeusia [Unknown]
  - Decreased appetite [Unknown]
  - Weight decreased [Unknown]
  - Nausea [Unknown]
  - Asthenia [Unknown]
  - Platelet count decreased [Unknown]
